FAERS Safety Report 18694185 (Version 1)
Quarter: 2020Q4

REPORT INFORMATION
  Report Type: Spontaneous
  Country: US (occurrence: US)
  Receive Date: 20201231
  Receipt Date: 20201231
  Transmission Date: 20210114
  Serious: Yes (Other)
  Sender: FDA-Public Use
  Company Number: None

PATIENT
  Age: 56 Year
  Sex: Female
  Weight: 78.75 kg

DRUGS (17)
  1. BAMLANIVIMAB. [Suspect]
     Active Substance: BAMLANIVIMAB
     Indication: COVID-19
     Dosage: ?          QUANTITY:1 INJECTION(S);OTHER FREQUENCY:ONE TIME;?
     Route: 042
     Dates: start: 20201226, end: 20201226
  2. ROPINIROLE. [Concomitant]
     Active Substance: ROPINIROLE
  3. ATORVASTATIN [Concomitant]
     Active Substance: ATORVASTATIN
  4. METFORMIN [Concomitant]
     Active Substance: METFORMIN HYDROCHLORIDE
  5. LOSARTAN HC [Concomitant]
  6. ASPIRIN (LOW DOSE) [Concomitant]
  7. ABDOMINAL STENTS (TWO) [Concomitant]
  8. FENOFIBRATE. [Concomitant]
     Active Substance: FENOFIBRATE
  9. CLOPIDOGREL [Concomitant]
     Active Substance: CLOPIDOGREL BISULFATE
  10. CALTRATE 1200MG [Concomitant]
  11. BARIATRIC MULTI-VITAMIN 1000 MG + IRON [Concomitant]
  12. VASCEPA [Concomitant]
     Active Substance: ICOSAPENT ETHYL
  13. AMLODIPINE [Concomitant]
     Active Substance: AMLODIPINE BESYLATE
  14. ESCITALOPRAM [Concomitant]
     Active Substance: ESCITALOPRAM OXALATE
  15. BENZONATATE. [Concomitant]
     Active Substance: BENZONATATE
  16. JARDIANCE [Concomitant]
     Active Substance: EMPAGLIFLOZIN
  17. GLIPIZIDE. [Concomitant]
     Active Substance: GLIPIZIDE

REACTIONS (6)
  - Chest pain [None]
  - Fatigue [None]
  - Nausea [None]
  - Abdominal pain [None]
  - Eating disorder [None]
  - Gait disturbance [None]

NARRATIVE: CASE EVENT DATE: 20201226
